FAERS Safety Report 4982734-3 (Version None)
Quarter: 2006Q2

REPORT INFORMATION
  Report Type: 
  Country: None (occurrence: None)
  Receive Date: 20060425
  Receipt Date: 20051014
  Transmission Date: 20061013
  Serious: Yes (Hospitalization)
  Sender: FDA-Public Use
  Company Number: US-MERCK-0510USA07522

PATIENT
  Age: 71 Year
  Sex: Male
  Weight: 100 kg

DRUGS (5)
  1. VIOXX [Suspect]
     Indication: OSTEOARTHRITIS
     Route: 048
     Dates: start: 20000314
  2. VIOXX [Suspect]
     Route: 048
     Dates: start: 20011029, end: 20011210
  3. VIOXX [Suspect]
     Route: 048
     Dates: start: 20000607
  4. WELLBUTRIN [Concomitant]
     Indication: DEPRESSION
     Route: 048
  5. ZOLOFT [Concomitant]
     Indication: DEPRESSION
     Route: 048

REACTIONS (9)
  - ARTHROPATHY [None]
  - CATARACT [None]
  - COLON CANCER [None]
  - DEAFNESS [None]
  - HAEMORRHOIDAL HAEMORRHAGE [None]
  - INJURY [None]
  - MYOCARDIAL INFARCTION [None]
  - POLLAKIURIA [None]
  - URINARY RETENTION [None]
